FAERS Safety Report 16060060 (Version 1)
Quarter: 2019Q1

REPORT INFORMATION
  Report Type: Spontaneous
  Country: US (occurrence: US)
  Receive Date: 20190312
  Receipt Date: 20190312
  Transmission Date: 20190418
  Serious: Yes (Death)
  Sender: FDA-Public Use
  Company Number: None

PATIENT
  Age: 64 Year
  Sex: Male
  Weight: 144 kg

DRUGS (13)
  1. TRULICITY [Suspect]
     Active Substance: DULAGLUTIDE
     Indication: HYPERGLYCAEMIA
     Dates: start: 20180118
  2. VALSARTAN. [Concomitant]
     Active Substance: VALSARTAN
  3. LYRICA [Concomitant]
     Active Substance: PREGABALIN
  4. ATORVASTATIN [Concomitant]
     Active Substance: ATORVASTATIN
  5. METFORMIN [Concomitant]
     Active Substance: METFORMIN HYDROCHLORIDE
  6. FUROSEMIDE. [Concomitant]
     Active Substance: FUROSEMIDE
  7. VERAPAMIL [Concomitant]
     Active Substance: VERAPAMIL HYDROCHLORIDE
  8. PAROXETINE. [Concomitant]
     Active Substance: PAROXETINE
  9. XARELTO [Concomitant]
     Active Substance: RIVAROXABAN
  10. INVOKANA [Concomitant]
     Active Substance: CANAGLIFLOZIN
  11. PIOGLITAZONE. [Concomitant]
     Active Substance: PIOGLITAZONE
  12. PLAVIX [Concomitant]
     Active Substance: CLOPIDOGREL BISULFATE
  13. GLYGURIDE [Concomitant]

REACTIONS (9)
  - Nausea [None]
  - Blood glucose increased [None]
  - Injection site pain [None]
  - Body temperature decreased [None]
  - Cardio-respiratory arrest [None]
  - Metabolic acidosis [None]
  - Asthenia [None]
  - Hypotension [None]
  - Procedural complication [None]

NARRATIVE: CASE EVENT DATE: 20180121
